FAERS Safety Report 4953093-7 (Version None)
Quarter: 2006Q1

REPORT INFORMATION
  Report Type: 
  Country: None (occurrence: None)
  Receive Date: 20060324
  Receipt Date: 20060314
  Transmission Date: 20060701
  Serious: Yes (Other)
  Sender: FDA-Public Use
  Company Number: 2006AP01301

PATIENT
  Sex: Female

DRUGS (6)
  1. ARIMIDEX [Suspect]
     Indication: BREAST CANCER
     Route: 048
     Dates: start: 20051115
  2. MAGMITT [Concomitant]
     Route: 048
     Dates: start: 20051019, end: 20051214
  3. GLYCYRON [Concomitant]
     Route: 048
     Dates: start: 20051115, end: 20060222
  4. CYCLOPHOSPHAMIDE [Concomitant]
  5. METHOTREXATE [Concomitant]
  6. FLUOROURACIL [Concomitant]

REACTIONS (3)
  - DIPLOPIA [None]
  - INTRAOCULAR PRESSURE INCREASED [None]
  - VITH NERVE PARALYSIS [None]
